FAERS Safety Report 7587091-4 (Version None)
Quarter: 2011Q3

REPORT INFORMATION
  Report Type: 
  Country: None (occurrence: None)
  Receive Date: 20110701
  Receipt Date: 20110624
  Transmission Date: 20111222
  Serious: Yes (Death, Hospitalization, Other)
  Sender: FDA-Public Use
  Company Number: CA-GENZYME-MOZO-1000417

PATIENT
  Sex: Male
  Weight: 134 kg

DRUGS (53)
  1. MICAFUNGIN [Concomitant]
     Indication: INFECTION PROPHYLAXIS
     Dosage: 50 MG, QD
     Route: 042
     Dates: start: 20100927, end: 20101017
  2. MICAFUNGIN [Concomitant]
     Indication: ANTIFUNGAL PROPHYLAXIS
     Dosage: 50 MG, QD
     Route: 042
     Dates: start: 20101023, end: 20101024
  3. DEXAMETHASONE [Concomitant]
     Indication: NAUSEA
     Dosage: 10 MG, QD
     Route: 042
     Dates: start: 20100927, end: 20101001
  4. RANITIDINE [Concomitant]
     Indication: PROPHYLAXIS AGAINST GASTROINTESTINAL ULCER
     Dosage: 150 MG, BID
     Route: 048
     Dates: start: 20101016, end: 20101019
  5. FLUCONAZOLE [Concomitant]
     Indication: ANTIFUNGAL PROPHYLAXIS
     Dosage: 150 MG, UNK
     Route: 048
     Dates: start: 20101022, end: 20101102
  6. ACYCLOVIR [Concomitant]
     Indication: ANTIVIRAL PROPHYLAXIS
     Dosage: 200 MG, BID
     Route: 048
     Dates: start: 20101003, end: 20101017
  7. NORVASC [Concomitant]
     Indication: PRODUCT USED FOR UNKNOWN INDICATION
     Dosage: 5 G, QD
     Route: 048
     Dates: start: 20100926, end: 20100930
  8. CIPROFLOXACIN [Concomitant]
     Indication: INFECTION PROPHYLAXIS
     Dosage: 500 MG, QD
     Route: 048
     Dates: start: 20100816, end: 20101025
  9. ALLOPURINOL [Concomitant]
     Indication: PROPHYLAXIS
     Dosage: 300 MG, TID
     Route: 048
     Dates: start: 20100924, end: 20101003
  10. PANTOPRAZOLE [Concomitant]
     Indication: PROPHYLAXIS
     Dosage: 40 MG, QD
     Route: 048
     Dates: start: 20100924, end: 20101004
  11. LINEZOLID [Concomitant]
     Indication: PRODUCT USED FOR UNKNOWN INDICATION
     Dosage: 600 MG, QD
     Route: 042
     Dates: start: 20101022, end: 20101025
  12. METOPROLOL TARTRATE [Concomitant]
     Indication: HYPERTENSION
     Dosage: 5 MG, TID
     Route: 048
     Dates: start: 20101013, end: 20101016
  13. DOMPERIDONE [Concomitant]
     Indication: NAUSEA
     Dosage: 10 MG, UNK
     Route: 048
     Dates: start: 20101016, end: 20101018
  14. CYCLOSPORINE [Concomitant]
     Dosage: 100 MG, UNK
     Route: 048
     Dates: start: 20101018, end: 20101018
  15. DILAUDID [Concomitant]
     Indication: MIGRAINE
     Dosage: 4 MG, PRN
     Route: 042
     Dates: start: 20101022, end: 20101031
  16. CYCLOSPORINE [Concomitant]
     Dosage: 240 MG, UNK
     Route: 042
     Dates: start: 20101011, end: 20101013
  17. CYCLOSPORINE [Concomitant]
     Dosage: 210 MG, UNK
     Route: 042
     Dates: start: 20101014, end: 20101014
  18. CYCLOSPORINE [Concomitant]
     Dosage: 190 MG, BID
     Route: 042
     Dates: start: 20101015, end: 20101016
  19. CLONAZEPAM [Concomitant]
     Indication: DEPRESSION
     Dosage: 0.5 G, BID
     Route: 048
     Dates: start: 20101026, end: 20101029
  20. GANCICLOVIR [Concomitant]
     Indication: CYTOMEGALOVIRUS TEST POSITIVE
     Dosage: 600 MG, UNK
     Route: 042
     Dates: start: 20101026, end: 20101102
  21. BUDESONIDE [Concomitant]
     Indication: PROPHYLAXIS AGAINST GRAFT VERSUS HOST DISEASE
     Dosage: 9 MG, QD
     Route: 048
     Dates: start: 20101022, end: 20101102
  22. COTRIM [Concomitant]
     Indication: PROPHYLAXIS OF NAUSEA AND VOMITING
     Dosage: 400 MG, UNK
     Route: 048
     Dates: start: 20101022, end: 20101102
  23. LISINOPRIL [Concomitant]
     Indication: HYPERTENSION
     Dosage: 5 MG, QD
     Route: 048
     Dates: start: 20100927, end: 20101017
  24. CYCLOSPORINE [Concomitant]
     Dosage: 300 MG, UNK
     Route: 048
     Dates: start: 20101017, end: 20101017
  25. PREDNISOLONE [Concomitant]
     Indication: GRAFT VERSUS HOST DISEASE
     Dosage: 50 MG, UNK
     Route: 048
     Dates: start: 20101031
  26. SEPTRA [Concomitant]
     Indication: PRODUCT USED FOR UNKNOWN INDICATION
     Dosage: 2 UNK, UNK
     Route: 048
  27. ATENOLOL [Concomitant]
     Indication: HYPERTENSION
     Dosage: 50 MG, BID
     Route: 048
     Dates: start: 20101026
  28. OCTREOTIDE ACETATE [Concomitant]
     Indication: ACUTE GRAFT VERSUS HOST DISEASE IN INTESTINE
     Dosage: 500 MG, QDX3
     Route: 058
     Dates: start: 20101022, end: 20101024
  29. CYCLOSPORINE [Concomitant]
     Indication: GRAFT VERSUS HOST DISEASE
     Dosage: 280 MG, UNK
     Route: 042
     Dates: start: 20101001, end: 20101010
  30. LISINOPRIL [Concomitant]
     Indication: PRODUCT USED FOR UNKNOWN INDICATION
     Dosage: 10 MG, QD
     Route: 048
  31. MORPHINE [Concomitant]
     Indication: HEADACHE
     Dosage: 2 MG, UNK
     Route: 042
     Dates: start: 20100927, end: 20100930
  32. PROCHLORPERAZINE [Concomitant]
     Indication: PROPHYLAXIS OF NAUSEA AND VOMITING
     Dosage: 10 MG, QID
     Route: 042
     Dates: start: 20101022, end: 20101025
  33. MAXERAN [Concomitant]
     Indication: PROPHYLAXIS OF NAUSEA AND VOMITING
     Dosage: 30 MG, UNK
     Route: 042
     Dates: start: 20101003, end: 20101012
  34. BUSULFAN [Concomitant]
     Indication: BONE MARROW CONDITIONING REGIMEN
     Dosage: 300 MG, UNK
     Route: 042
     Dates: start: 20100927, end: 20100930
  35. NORVASC [Concomitant]
     Dosage: 10 MG, QD
     Route: 048
     Dates: start: 20101027, end: 20101102
  36. MAGNESIUM SULPHATE POTASSIUM CHLORIDE [Concomitant]
     Indication: PROPHYLAXIS
     Dosage: 5 G, PRN
     Route: 042
     Dates: start: 20101006, end: 20101030
  37. NYSTATIN [Concomitant]
     Indication: OEDEMA MOUTH
     Dosage: 1.5 G, QS
     Route: 061
     Dates: start: 20101026, end: 20101102
  38. PIPERACILLIN AND TAZOBACTAM [Concomitant]
     Indication: FEBRILE NEUTROPENIA
     Dosage: 4.5 G, TID
     Route: 042
     Dates: start: 20101012, end: 20101017
  39. LASIX [Concomitant]
     Indication: PROPHYLAXIS
     Dosage: 20 MG, BID
     Route: 042
     Dates: start: 20101015, end: 20101016
  40. BENADRYL [Concomitant]
     Indication: ALLERGY PROPHYLAXIS
     Dosage: 50 MG, TID
     Route: 042
     Dates: start: 20101004, end: 20101013
  41. CYCLOSPORINE [Concomitant]
     Dosage: 90 MG, UNK
     Route: 042
     Dates: start: 20101028, end: 20101030
  42. CYCLOSPORINE [Concomitant]
     Dosage: 100 MG, UNK
     Route: 048
     Dates: start: 20101030, end: 20101102
  43. MOZOBIL [Suspect]
     Indication: ACUTE MYELOID LEUKAEMIA
     Dosage: 23 MG, UNK
     Route: 058
     Dates: start: 20100927, end: 20100927
  44. FLUDARA [Concomitant]
     Indication: BONE MARROW CONDITIONING REGIMEN
     Dosage: 102 MG, UNK
     Route: 042
     Dates: start: 20100927, end: 20100930
  45. MYCOPHENOLATE MEFETIL [Concomitant]
     Indication: PRODUCT USED FOR UNKNOWN INDICATION
     Dosage: 1500 MG, UNK
     Route: 048
     Dates: start: 20101002
  46. NORVASC [Concomitant]
     Indication: HYPERTENSION
     Dosage: 10 MG, QD
     Route: 048
  47. ATIVAN [Concomitant]
     Indication: PRODUCT USED FOR UNKNOWN INDICATION
     Dosage: UNK
  48. PHENYTOIN [Concomitant]
     Indication: PROPHYLAXIS OF NAUSEA AND VOMITING
     Dosage: 100 MG, TID
     Route: 048
     Dates: start: 20100926, end: 20101003
  49. GRANISETRON [Concomitant]
     Indication: NAUSEA
     Dosage: 1 MG, QD
     Route: 042
     Dates: start: 20100927, end: 20100930
  50. IMOVANE [Concomitant]
     Indication: INSOMNIA
     Dosage: 7.5 MG, PRN
     Route: 048
     Dates: start: 20101004, end: 20101023
  51. MAGNESIUM OXIDE [Concomitant]
     Indication: SUPPLEMENTATION THERAPY
     Dosage: 835 MG, UNK
     Route: 048
     Dates: start: 20101017, end: 20101018
  52. OCTREOTIDE ACETATE [Concomitant]
     Indication: DIARRHOEA
  53. PEPCID [Concomitant]
     Indication: PROPHYLAXIS
     Dosage: 20 MG, UNK
     Route: 042
     Dates: start: 20101003, end: 20101016

REACTIONS (14)
  - CYTOMEGALOVIRUS INFECTION [None]
  - HEPATIC FAILURE [None]
  - HERPES ZOSTER DISSEMINATED [None]
  - BK VIRUS INFECTION [None]
  - ASPERGILLOSIS [None]
  - RENAL FAILURE [None]
  - GRAFT VERSUS HOST DISEASE [None]
  - HYPOTENSION [None]
  - CYSTITIS HAEMORRHAGIC [None]
  - SEPSIS [None]
  - DEHYDRATION [None]
  - MUCOSAL INFLAMMATION [None]
  - HYPERBILIRUBINAEMIA [None]
  - RESPIRATORY FAILURE [None]
